FAERS Safety Report 13565774 (Version 2)
Quarter: 2017Q4

REPORT INFORMATION
  Report Type: Spontaneous
  Country: GB (occurrence: GB)
  Receive Date: 20170520
  Receipt Date: 20171118
  Transmission Date: 20180320
  Serious: Yes (Hospitalization)
  Sender: FDA-Public Use
  Company Number: GB-ACCORD-051482

PATIENT
  Age: 93 Year
  Sex: Female

DRUGS (7)
  1. TEMAZEPAM. [Concomitant]
     Active Substance: TEMAZEPAM
     Indication: INSOMNIA
     Dosage: EVERY NIGHT
  2. ADALAT CC [Suspect]
     Active Substance: NIFEDIPINE
     Indication: HYPERTENSION
     Route: 048
     Dates: end: 201707
  3. CETIRIZINE [Concomitant]
     Active Substance: CETIRIZINE HYDROCHLORIDE
     Indication: HYPERSENSITIVITY
  4. IRON [Concomitant]
     Active Substance: IRON
     Indication: IRON DEFICIENCY
     Dosage: EVERY MORNING
  5. COLECALCIFEROL [Concomitant]
     Active Substance: CHOLECALCIFEROL
     Indication: VITAMIN D DEFICIENCY
  6. ALENDRONATE SODIUM/ALENDRONIC ACID [Concomitant]
     Indication: OSTEOPOROSIS
  7. RAMIPRIL. [Suspect]
     Active Substance: RAMIPRIL
     Indication: CHRONIC KIDNEY DISEASE
     Route: 048
     Dates: end: 201707

REACTIONS (4)
  - Off label use [Unknown]
  - Pseudomonas infection [Unknown]
  - Renal impairment [Recovering/Resolving]
  - Acute kidney injury [Recovering/Resolving]
